FAERS Safety Report 16429580 (Version 1)
Quarter: 2019Q2

REPORT INFORMATION
  Report Type: Spontaneous
  Country: IE (occurrence: IE)
  Receive Date: 20190614
  Receipt Date: 20190614
  Transmission Date: 20190711
  Serious: Yes (Hospitalization, Other)
  Sender: FDA-Public Use
  Company Number: IE-VELOXIS PHARMACEUTICALS, INC.-2019VELIE1566

PATIENT
  Age: 14 Year
  Sex: Male

DRUGS (6)
  1. PREDNISOLONE. [Concomitant]
     Active Substance: PREDNISOLONE
     Indication: RENAL TRANSPLANT
     Dosage: 5 MG, QD
  2. ENVARSUS XR [Suspect]
     Active Substance: TACROLIMUS
     Dosage: 1 MG, BID
  3. ENVARSUS XR [Suspect]
     Active Substance: TACROLIMUS
     Dosage: UNK
  4. MYCOPHENOLATE MOFETIL. [Suspect]
     Active Substance: MYCOPHENOLATE MOFETIL
     Indication: RENAL TRANSPLANT
     Dosage: 720 MG, QD
     Dates: end: 201807
  5. PREDNISOLONE. [Concomitant]
     Active Substance: PREDNISOLONE
     Dosage: 500 MG, 3 DAYS
  6. ENVARSUS XR [Suspect]
     Active Substance: TACROLIMUS
     Indication: RENAL TRANSPLANT
     Dosage: 3.5 MG, QD
     Route: 048
     Dates: end: 201807

REACTIONS (5)
  - Polyomavirus-associated nephropathy [Recovered/Resolved]
  - Intentional product use issue [Unknown]
  - Urinary tract obstruction [Unknown]
  - Pyonephrosis [Unknown]
  - Transplant rejection [Recovered/Resolved]

NARRATIVE: CASE EVENT DATE: 2018
